FAERS Safety Report 7375703-X (Version None)
Quarter: 2011Q1

REPORT INFORMATION
  Report Type: 
  Country: None (occurrence: None)
  Receive Date: 20110325
  Receipt Date: 20110323
  Transmission Date: 20110831
  Serious: Yes (Other)
  Sender: FDA-Public Use
  Company Number: EE-PFIZER INC-2011036148

PATIENT
  Age: 75 Year
  Sex: Female
  Weight: 79 kg

DRUGS (15)
  1. ENALAPRIL [Concomitant]
     Dosage: 10 MG, 2X/DAY
  2. SYMBICORT [Concomitant]
     Dosage: 160/4.5 MCG 2 DOSES 2XDAY
  3. MICARDIS [Concomitant]
     Dosage: 80 MG, 1X/DAY
  4. TORASEMID [Concomitant]
     Dosage: 50 MG, ALTERNATE DAY
  5. AMITRIPTYLINE [Concomitant]
     Dosage: 25 MG, 1X/DAY
  6. ATROVENT [Concomitant]
     Dosage: 3 DOSES THREE TIMES A DAY
  7. CALCIGRAN FORTE [Concomitant]
     Dosage: UNK
  8. ROCALTROL [Concomitant]
     Dosage: 0.25 UG, 1X/DAY
  9. LUSOPRESS [Concomitant]
     Dosage: 20 MG, 2X/DAY
  10. CITALOPRAM [Concomitant]
     Dosage: 20 MG, 1X/DAY
  11. NEURONTIN [Suspect]
     Indication: DIABETIC NEUROPATHY
     Dosage: 300 MG, 1X/DAY
     Route: 048
     Dates: start: 20110124, end: 20110211
  12. TEOTARD [Concomitant]
     Dosage: 200 MG, 2X/DAY
  13. CARVEDILOL [Concomitant]
     Dosage: 3.125 MG, 1X/DAY
  14. CONTROLOC [Concomitant]
     Dosage: 20 MG, 1X/DAY
     Dates: start: 20100101
  15. ARANESP [Concomitant]
     Dosage: UNK

REACTIONS (9)
  - RED BLOOD CELL COUNT DECREASED [None]
  - DYSSTASIA [None]
  - MYALGIA [None]
  - HAEMOGLOBIN DECREASED [None]
  - BLOOD GLUCOSE INCREASED [None]
  - MUSCULAR WEAKNESS [None]
  - BLOOD CREATINE INCREASED [None]
  - FALL [None]
  - BLOOD POTASSIUM INCREASED [None]
